FAERS Safety Report 11157929 (Version 3)
Quarter: 2016Q1

REPORT INFORMATION
  Report Type: Report from Study
  Country: None (occurrence: GB)
  Receive Date: 20150601
  Receipt Date: 20160318
  Transmission Date: 20160525
  Serious: Yes (Death, Life-Threatening)
  Sender: FDA-Public Use
  Company Number: 2015GB0286

PATIENT
  Age: 34 Year
  Sex: Male
  Weight: 79.5 kg

DRUGS (17)
  1. ACICLOVIR [Concomitant]
     Active Substance: ACYCLOVIR
     Indication: ANTIVIRAL TREATMENT
     Dates: start: 20150423
  2. FILGRASTIM [Concomitant]
     Active Substance: FILGRASTIM
     Indication: NEUTROPENIA
     Route: 058
     Dates: start: 20150507
  3. LOPERAMIDE [Concomitant]
     Active Substance: LOPERAMIDE
     Indication: DIARRHOEA
     Dates: start: 20150509
  4. ONDANSETRON [Concomitant]
     Active Substance: ONDANSETRON
     Indication: ANTIEMETIC SUPPORTIVE CARE
     Dates: start: 20150424
  5. METHOTREXATE [Concomitant]
     Active Substance: METHOTREXATE
     Route: 042
     Dates: start: 20150502, end: 20150502
  6. URSODEOXYCHOLIC ACID [Concomitant]
     Active Substance: URSODIOL
     Route: 048
     Dates: start: 20150424, end: 20150424
  7. ETOPOSIDE. [Concomitant]
     Active Substance: ETOPOSIDE
     Route: 042
     Dates: start: 20150424, end: 20150424
  8. RANITIDINE [Concomitant]
     Active Substance: RANITIDINE\RANITIDINE HYDROCHLORIDE
     Dates: start: 20150423
  9. VITAMIN K [Concomitant]
     Active Substance: PHYTONADIONE
     Indication: COAGULATION TIME
     Route: 042
     Dates: start: 20150507
  10. SUCRALFATE. [Concomitant]
     Active Substance: SUCRALFATE
     Indication: MUCOSAL INFLAMMATION
     Dates: start: 20150427
  11. CEFTAZIDIME. [Concomitant]
     Active Substance: CEFTAZIDIME
     Indication: ANTIBIOTIC THERAPY
     Route: 042
     Dates: start: 20150515
  12. ITRACONAZOLE. [Concomitant]
     Active Substance: ITRACONAZOLE
     Indication: ANTIFUNGAL TREATMENT
     Route: 042
     Dates: start: 20150423
  13. AMITRIPTYLINE [Concomitant]
     Active Substance: AMITRIPTYLINE
     Dates: start: 20150423
  14. PEGYLATED ASPARAGINASE [Concomitant]
     Active Substance: PEGASPARGASE
     Dosage: 1700 IU DAILY, AT TWO DAYS IN THE CYCLE (27DEC2014-10JAN2015).
     Route: 042
     Dates: start: 20141227, end: 20150110
  15. DEXAMETHASONE. [Concomitant]
     Active Substance: DEXAMETHASONE
     Route: 042
     Dates: start: 20150424, end: 20150424
  16. KEPIVANCE [Suspect]
     Active Substance: PALIFERMIN
     Dosage: 4.75 MG AT 4 OCCASIONS (DAY -10, -9, -8 AND 0).
     Route: 042
     Dates: start: 20150421, end: 20150501
  17. DIFFLAM [Concomitant]
     Active Substance: BENZYDAMINE HYDROCHLORIDE
     Route: 061
     Dates: start: 20150427

REACTIONS (5)
  - Sepsis [Recovered/Resolved]
  - Cardiac arrest [Fatal]
  - Disseminated intravascular coagulation [Fatal]
  - Acute kidney injury [Not Recovered/Not Resolved]
  - Toxic epidermal necrolysis [Fatal]

NARRATIVE: CASE EVENT DATE: 20150506
